FAERS Safety Report 6497483-2 (Version None)
Quarter: 2009Q4

REPORT INFORMATION
  Report Type: 
  Country: None (occurrence: None)
  Receive Date: 20091215
  Receipt Date: 20091202
  Transmission Date: 20100525
  Serious: Yes (Other)
  Sender: FDA-Public Use
  Company Number: BR-ELI_LILLY_AND_COMPANY-BR200912000732

PATIENT
  Sex: Female
  Weight: 56 kg

DRUGS (3)
  1. FORTEO [Suspect]
     Indication: OSTEOPOROSIS
     Dosage: 20 UG, DAILY (1/D)
     Route: 058
     Dates: start: 20091001
  2. MIOSAN [Concomitant]
     Indication: FIBROMYALGIA
     Dosage: UNK, DAILY (1/D)
     Route: 065
  3. FLUOXETINE [Concomitant]
     Indication: ANXIETY
     Dosage: 10 GTT, DAILY (1/D)
     Route: 065

REACTIONS (2)
  - CONDITION AGGRAVATED [None]
  - VISION BLURRED [None]
